FAERS Safety Report 5755380-1 (Version None)
Quarter: 2008Q2

REPORT INFORMATION
  Report Type: 
  Country: None (occurrence: None)
  Receive Date: 20080529
  Receipt Date: 20080529
  Transmission Date: 20081010
  Serious: Yes (Hospitalization)
  Sender: FDA-Public Use
  Company Number: None

PATIENT
  Age: 54 Year
  Sex: Female
  Weight: 68.0396 kg

DRUGS (2)
  1. PREMARIN [Suspect]
     Indication: ARTIFICIAL MENOPAUSE
     Dosage: 1 PILL DAILY PO
     Route: 048
     Dates: start: 19820101, end: 20040101
  2. PREMARIN [Suspect]
     Indication: ARTIFICIAL MENOPAUSE
     Dosage: 1 PILL DAILY PO
     Route: 048
     Dates: start: 19850303, end: 20041111

REACTIONS (1)
  - BREAST CANCER [None]
